FAERS Safety Report 9772129 (Version 1)
Quarter: 2013Q4

REPORT INFORMATION
  Report Type: Spontaneous
  Country: US (occurrence: None)
  Receive Date: 20131218
  Receipt Date: 20131218
  Transmission Date: 20140711
  Serious: Yes (Disabling)
  Sender: FDA-Public Use
  Company Number: None

PATIENT
  Age: 20 Year
  Sex: Male
  Weight: 87.09 kg

DRUGS (1)
  1. PROPECIA [Suspect]
     Indication: ALOPECIA
     Route: 048
     Dates: start: 20100120, end: 20110301

REACTIONS (8)
  - Sexual dysfunction [None]
  - Mental status changes [None]
  - Emotional disorder [None]
  - Endocrine disorder [None]
  - Anxiety [None]
  - Disturbance in attention [None]
  - Depression [None]
  - Cognitive disorder [None]
